FAERS Safety Report 9493308 (Version 2)
Quarter: 2013Q3

REPORT INFORMATION
  Report Type: Report from Study
  Country: US (occurrence: US)
  Receive Date: 20130902
  Receipt Date: 20130902
  Transmission Date: 20140515
  Serious: Yes (Hospitalization, Other)
  Sender: FDA-Public Use
  Company Number: PHHO2011US00620

PATIENT
  Age: 63 Year
  Sex: Female
  Weight: 64.4 kg

DRUGS (7)
  1. ALISKIREN [Suspect]
     Indication: CARDIOVASCULAR DISORDER
     Route: 048
     Dates: start: 20091013
  2. LANTUS [Suspect]
     Indication: TYPE 2 DIABETES MELLITUS
     Dosage: UNK
     Dates: start: 20090611, end: 20101112
  3. CATAPRES [Suspect]
     Indication: HYPERTENSION
     Dosage: UNK
     Dates: start: 20090611, end: 20101111
  4. IMDUR [Suspect]
     Indication: HYPERTENSION
     Dosage: UNK
     Dates: start: 20090506, end: 20101111
  5. COREG [Suspect]
     Indication: HYPERTENSION
     Dosage: UNK
     Dates: start: 20090506, end: 20101111
  6. LISINOPRIL W/HYDROCHLOROTHIAZIDE [Concomitant]
     Indication: HYPERTENSION
     Dosage: UNK
     Dates: start: 20081208, end: 20101111
  7. HYDRALAZINE [Suspect]
     Indication: HYPERTENSION
     Dosage: UNK
     Dates: start: 20070616, end: 20101111

REACTIONS (6)
  - Hypotension [Recovered/Resolved]
  - Hypoglycaemia [Recovered/Resolved]
  - Feeling abnormal [Recovered/Resolved]
  - Sinus bradycardia [Unknown]
  - Left ventricular hypertrophy [Unknown]
  - Urinary tract infection [Recovered/Resolved]
